FAERS Safety Report 5411039-1 (Version None)
Quarter: 2007Q3

REPORT INFORMATION
  Report Type: 
  Country: None (occurrence: None)
  Receive Date: 20070810
  Receipt Date: 20070802
  Transmission Date: 20080115
  Serious: Yes (Other)
  Sender: FDA-Public Use
  Company Number: US-JNJFOC-20070405969

PATIENT
  Sex: Female
  Weight: 67.13 kg

DRUGS (2)
  1. LEVAQUIN [Suspect]
     Route: 048
  2. LEVAQUIN [Suspect]
     Indication: SINUSITIS
     Route: 048

REACTIONS (4)
  - BRONCHITIS [None]
  - INSOMNIA [None]
  - MENIERE'S DISEASE [None]
  - TINNITUS [None]
